FAERS Safety Report 11817273 (Version 3)
Quarter: 2024Q1

REPORT INFORMATION
  Report Type: Spontaneous
  Country: US (occurrence: US)
  Receive Date: 20151210
  Receipt Date: 20240321
  Transmission Date: 20240410
  Serious: No
  Sender: FDA-Public Use
  Company Number: US-JNJFOC-20151108989

PATIENT
  Age: 22 Year
  Sex: Male

DRUGS (4)
  1. RISPERDAL [Suspect]
     Active Substance: RISPERIDONE
     Indication: Schizophrenia
     Route: 048
     Dates: start: 200207
  2. RISPERDAL [Suspect]
     Active Substance: RISPERIDONE
     Dosage: 4 MG AT BEDTIME
     Route: 048
     Dates: start: 20020918
  3. RISPERDAL [Suspect]
     Active Substance: RISPERIDONE
     Dosage: 6 MG AT BEDTIME
     Route: 048
     Dates: start: 20021004, end: 20021118
  4. RISPERDAL [Suspect]
     Active Substance: RISPERIDONE
     Route: 048
     Dates: end: 2003

REACTIONS (3)
  - Obesity [Unknown]
  - Gynaecomastia [Unknown]
  - Treatment noncompliance [Unknown]

NARRATIVE: CASE EVENT DATE: 20030909
